FAERS Safety Report 8580289-8 (Version None)
Quarter: 2012Q3

REPORT INFORMATION
  Report Type: 
  Country: None (occurrence: None)
  Receive Date: 20120808
  Receipt Date: 20120807
  Transmission Date: 20120928
  Serious: Yes (Other)
  Sender: FDA-Public Use
  Company Number: GB-BAYER-2012-046212

PATIENT
  Age: 44 Year
  Sex: Female

DRUGS (4)
  1. TRAZODONE HYDROCHLORIDE [Concomitant]
     Indication: DEPRESSION
     Dosage: UNK
     Dates: start: 20120301
  2. TRAZODONE HYDROCHLORIDE [Concomitant]
     Indication: ANXIETY
     Dosage: 100 MG, UNK
     Dates: start: 20120511
  3. BETASERON [Suspect]
     Indication: MULTIPLE SCLEROSIS
     Dosage: UNK
     Route: 058
     Dates: end: 20120509
  4. BETASERON [Suspect]
     Dosage: 250 ?G, QOD
     Route: 058
     Dates: start: 20120701

REACTIONS (10)
  - OBSESSIVE-COMPULSIVE DISORDER [None]
  - DEPRESSION [None]
  - HALLUCINATION [None]
  - AGITATION [None]
  - ANXIETY [None]
  - FATIGUE [None]
  - INFLUENZA LIKE ILLNESS [None]
  - PARANOIA [None]
  - SCHIZOPHRENIFORM DISORDER [None]
  - HALLUCINATION, AUDITORY [None]
